FAERS Safety Report 5182913-9 (Version None)
Quarter: 2006Q4

REPORT INFORMATION
  Report Type: 
  Country: None (occurrence: None)
  Receive Date: 20061220
  Receipt Date: 20061211
  Transmission Date: 20070319
  Serious: Yes (Death, Other)
  Sender: FDA-Public Use
  Company Number: ES-AVENTIS-200622718GDDC

PATIENT
  Age: 75 Year
  Sex: Female

DRUGS (19)
  1. TAVANIC [Suspect]
     Indication: RESPIRATORY DISORDER
     Dosage: DOSE: UNK
     Dates: start: 20060625, end: 20060704
  2. SEGURIL                            /00032601/ [Suspect]
     Indication: CARDIAC FAILURE CONGESTIVE
     Dosage: DOSE: UNK
     Dates: start: 20060625, end: 20060708
  3. URBASON [Suspect]
     Indication: RESPIRATORY DISORDER
     Route: 042
     Dates: start: 20060626, end: 20060702
  4. OMEPRAZOLE [Suspect]
     Indication: PROPHYLAXIS
     Dosage: DOSE: UNK
     Dates: start: 20060625, end: 20060702
  5. HIBOR [Suspect]
     Indication: PROPHYLAXIS
     Route: 058
     Dates: start: 20060625, end: 20060705
  6. HIBOR [Suspect]
     Indication: PULMONARY EMBOLISM
     Route: 058
     Dates: start: 20060625, end: 20060705
  7. HIBOR [Suspect]
     Indication: PROPHYLAXIS
     Route: 058
     Dates: start: 20060625, end: 20060705
  8. HIBOR [Suspect]
     Indication: PULMONARY INFARCTION
     Route: 058
     Dates: start: 20060625, end: 20060705
  9. BOI K [Suspect]
     Indication: HYPOKALAEMIA
     Route: 048
     Dates: start: 20060627, end: 20060702
  10. CODEISAN [Suspect]
     Indication: COUGH
     Route: 048
     Dates: start: 20060630, end: 20060706
  11. ACREL [Suspect]
     Indication: OSTEOPOROSIS PROPHYLAXIS
     Route: 048
     Dates: start: 20060702, end: 20060702
  12. MYCOSTATIN                         /00036501/ [Suspect]
     Indication: CANDIDIASIS
     Dosage: DOSE: UNK
     Route: 048
     Dates: start: 20060702, end: 20060721
  13. INSULATARD                         /00646002/ [Concomitant]
     Dosage: DOSE: 20-0-22
  14. ACOVIL [Concomitant]
  15. ZOCOR [Concomitant]
  16. ASPIRIN [Concomitant]
  17. LYRICA [Concomitant]
  18. ZYTRAM [Concomitant]
  19. IDEOS                              /00944201/ [Concomitant]

REACTIONS (4)
  - LEUKOCYTOSIS [None]
  - MULTI-ORGAN FAILURE [None]
  - SEPSIS [None]
  - THROMBOCYTOPENIA [None]
